FAERS Safety Report 26059649 (Version 2)
Quarter: 2025Q4

REPORT INFORMATION
  Report Type: Spontaneous
  Country: JP (occurrence: JP)
  Receive Date: 20251118
  Receipt Date: 20251120
  Transmission Date: 20260117
  Serious: Yes (Hospitalization, Other)
  Sender: PFIZER
  Company Number: JP-GENMAB-2025-03506

PATIENT
  Age: 55 Year
  Sex: Female
  Weight: 53 kg

DRUGS (1)
  1. TIVDAK [Suspect]
     Active Substance: TISOTUMAB VEDOTIN-TFTV
     Indication: Cervix carcinoma recurrent
     Dosage: 2 MILLIGRAM/KILOGRAM, 1Q3W
     Route: 042
     Dates: start: 20250723, end: 20251015

REACTIONS (4)
  - Hydronephrosis [Recovered/Resolved]
  - Acute kidney injury [Recovered/Resolved]
  - Cervix carcinoma recurrent [Not Recovered/Not Resolved]
  - Malignant neoplasm progression [Not Recovered/Not Resolved]

NARRATIVE: CASE EVENT DATE: 20251022
